FAERS Safety Report 9841918 (Version 1)
Quarter: 2013Q4

REPORT INFORMATION
  Report Type: Spontaneous
  Country: US (occurrence: None)
  Receive Date: 20131219
  Receipt Date: 20131219
  Transmission Date: 20140711
  Serious: Yes (Other)
  Sender: FDA-Public Use
  Company Number: 163-20785-12122503

PATIENT
  Age: 9 Year
  Sex: Female
  Weight: 26.5 kg

DRUGS (11)
  1. THALOMID [Suspect]
     Indication: MEDULLOBLASTOMA
     Route: 048
     Dates: start: 20120910
  2. ETOPOSIDE (ETOPOSIDE) [Suspect]
     Indication: MEDULLOBLASTOMA
     Dosage: 500 MG, 21 IN 21 D, PO
     Route: 048
     Dates: start: 20120910
  3. CYCLOPHOSPHAMIDE (CYCLOPHOSPHAMIDE) [Suspect]
     Indication: MEDULLOBLASTOMA
     Dosage: 62.5 MG, ALTERNATES W/PO ETOPOSIDE, PO
     Route: 048
     Dates: start: 20121001
  4. CELECOXIB (CELECOXIB) [Concomitant]
  5. FENOFIBRATE (FENOFIBRATE) (FENOFIBRATE) [Concomitant]
  6. BEVACIZUMAB (BEVACIZUMAB) [Concomitant]
  7. LIPOSOMAL CYTARABINE (CYTARABINE) [Concomitant]
  8. CELEBREX (CELECOXIB) [Concomitant]
  9. DILANTIN (PHENYTOIN SODIUM) [Concomitant]
  10. BACTRIM (BACTRIM) (SULFAMETHOXAZOLE, TRIMETHOPRIM) [Concomitant]
  11. LANSOPRAZOLE (LANSOPRAZOLE) [Concomitant]

REACTIONS (2)
  - Neutropenia [None]
  - Full blood count decreased [None]
